FAERS Safety Report 7603919-3 (Version None)
Quarter: 2011Q3

REPORT INFORMATION
  Report Type: 
  Country: None (occurrence: None)
  Receive Date: 20110712
  Receipt Date: 20110708
  Transmission Date: 20111222
  Serious: Yes (Hospitalization)
  Sender: FDA-Public Use
  Company Number: FR-ROCHE-754958

PATIENT
  Sex: Female
  Weight: 54 kg

DRUGS (8)
  1. CAPECITABINE [Suspect]
     Route: 048
  2. OXALIPLATIN [Suspect]
     Route: 065
  3. PAROXETINE HYDROCHLORIDE [Concomitant]
     Dates: start: 20080208
  4. SECTRAL [Concomitant]
     Dates: start: 20060101
  5. BEVACIZUMAB [Suspect]
     Dosage: DRUG TEMPORARILY INTERRUPTED. DATE OF LAST DOSE PRIOR TO SAE:19 JAN 2011
     Route: 042
     Dates: start: 20101208, end: 20110119
  6. FLUOROURACIL [Suspect]
     Route: 065
  7. IRINOTECAN HCL [Suspect]
     Route: 065
  8. BEVACIZUMAB [Suspect]
     Route: 042

REACTIONS (1)
  - ATRIAL TACHYCARDIA [None]
